FAERS Safety Report 7134595-4 (Version None)
Quarter: 2010Q4

REPORT INFORMATION
  Report Type: 
  Country: None (occurrence: None)
  Receive Date: 20101203
  Receipt Date: 20101124
  Transmission Date: 20110411
  Serious: Yes (Other)
  Sender: FDA-Public Use
  Company Number: CHPA2010US18312

PATIENT
  Age: 39 Year
  Sex: Female
  Weight: 54.422 kg

DRUGS (1)
  1. 1-DAY VAGINAL OINTMENT (NCH) [Suspect]
     Dosage: 300 MG, ONCE/SINGLE
     Route: 067
     Dates: start: 20100901, end: 20100901

REACTIONS (2)
  - FOREIGN BODY [None]
  - WRONG TECHNIQUE IN DRUG USAGE PROCESS [None]
